FAERS Safety Report 10641352 (Version 1)
Quarter: 2014Q4

REPORT INFORMATION
  Report Type: Report from Study
  Country: KR (occurrence: KR)
  Receive Date: 20141209
  Receipt Date: 20141209
  Transmission Date: 20150529
  Serious: Yes (Death)
  Sender: FDA-Public Use
  Company Number: KR-SA-2014SA170133

PATIENT

DRUGS (4)
  1. CYTARABINE. [Suspect]
     Active Substance: CYTARABINE
     Indication: NON-HODGKIN^S LYMPHOMA
     Dosage: HIGH DOSE CYTARABINE OVER 2 HOUR ON DAY 5 DOSE:2 GRAM(S)/SQUARE METER
     Route: 065
  2. OXALIPLATIN. [Suspect]
     Active Substance: OXALIPLATIN
     Indication: NON-HODGKIN^S LYMPHOMA
     Dosage: OVER 2 HOUR ON DAY 1 EVERY 3 WEEKS
     Route: 065
  3. METHYLPREDNISOLONE. [Suspect]
     Active Substance: METHYLPREDNISOLONE
     Indication: NON-HODGKIN^S LYMPHOMA
     Dosage: 500 MG IV OVER 15 MIN ON DAYS 1-5 EVERY 3 WEEKS
     Route: 065
  4. ETOPOSIDE. [Suspect]
     Active Substance: ETOPOSIDE
     Indication: NON-HODGKIN^S LYMPHOMA
     Dosage: OVER 2 HOUR ON DAYS 1-4 EVERY 3 WEEKS
     Route: 065

REACTIONS (1)
  - Hepatitis viral [Fatal]
